FAERS Safety Report 9856259 (Version 1)
Quarter: 2014Q1

REPORT INFORMATION
  Report Type: Report from Study
  Country: DE (occurrence: DE)
  Receive Date: 20140130
  Receipt Date: 20140130
  Transmission Date: 20141002
  Serious: No
  Sender: FDA-Public Use
  Company Number: PHHY2014DE011356

PATIENT
  Sex: Female
  Weight: 66 kg

DRUGS (3)
  1. AMN107 [Suspect]
     Indication: CHRONIC MYELOID LEUKAEMIA
     Dosage: 400 MG, PER DAY
     Route: 048
     Dates: start: 20100303
  2. MAPROTILIN [Concomitant]
  3. CLARITHROMYCIN [Concomitant]
     Dates: start: 20101014, end: 201010

REACTIONS (1)
  - Bronchitis [Recovered/Resolved]
